FAERS Safety Report 5198088-6 (Version None)
Quarter: 2006Q4

REPORT INFORMATION
  Report Type: 
  Country: None (occurrence: None)
  Receive Date: 20061229
  Receipt Date: 20061214
  Transmission Date: 20070319
  Serious: Yes (Other)
  Sender: FDA-Public Use
  Company Number: 2006300902

PATIENT
  Age: 28 Year
  Sex: Male

DRUGS (6)
  1. NICOTINE [Suspect]
     Indication: SMOKING CESSATION THERAPY
     Dosage: PATCH, TRANSDERMAL
     Route: 062
  2. COMMIT [Suspect]
     Indication: SMOKING CESSATION THERAPY
     Dosage: CHEWING GUM, ORAL
     Route: 048
     Dates: start: 20061210
  3. MULTI-VITAMINS [Concomitant]
  4. FOLIC ACID [Concomitant]
  5. THIAMIN (THIAMINE HYDROCHLORIDE) [Concomitant]
  6. METHADONE HCL [Concomitant]

REACTIONS (1)
  - ANAPHYLACTIC REACTION [None]
